FAERS Safety Report 8234544-1 (Version None)
Quarter: 2012Q1

REPORT INFORMATION
  Report Type: 
  Country: None (occurrence: None)
  Receive Date: 20120326
  Receipt Date: 20120312
  Transmission Date: 20120608
  Serious: Yes (Hospitalization, Other)
  Sender: FDA-Public Use
  Company Number: JP-ROCHE-769325

PATIENT
  Sex: Female
  Weight: 56 kg

DRUGS (7)
  1. MARZULENE S [Concomitant]
     Indication: GASTROINTESTINAL DISORDER
     Route: 048
     Dates: start: 20041018
  2. FOLIC ACID [Concomitant]
     Route: 048
     Dates: start: 20041018, end: 20100820
  3. ACTEMRA [Suspect]
     Indication: PRODUCT USED FOR UNKNOWN INDICATION
     Route: 042
     Dates: start: 20100723, end: 20110318
  4. RHEUMATREX [Concomitant]
     Indication: RHEUMATOID ARTHRITIS
     Route: 048
     Dates: start: 20041018, end: 20090630
  5. MOBIC [Concomitant]
     Indication: RHEUMATOID ARTHRITIS
     Dates: start: 20041018
  6. RHEUMATREX [Concomitant]
     Route: 048
     Dates: start: 20090630
  7. PREDNISOLONE [Concomitant]
     Indication: RHEUMATOID ARTHRITIS
     Dates: start: 20041018, end: 20090630

REACTIONS (8)
  - WHITE BLOOD CELL COUNT DECREASED [None]
  - HYPOAESTHESIA [None]
  - LOSS OF CONSCIOUSNESS [None]
  - QUADRIPLEGIA [None]
  - PARAPLEGIA [None]
  - PARALYSIS [None]
  - PLATELET COUNT DECREASED [None]
  - APHASIA [None]
